FAERS Safety Report 9006008 (Version 1)
Quarter: 2013Q1

REPORT INFORMATION
  Report Type: Spontaneous
  Country: GB (occurrence: GB)
  Receive Date: 20130109
  Receipt Date: 20130109
  Transmission Date: 20140127
  Serious: Yes (Other)
  Sender: FDA-Public Use
  Company Number: PHFR2012GB004968

PATIENT
  Age: 63 Year
  Sex: Female
  Weight: 62.5 kg

DRUGS (2)
  1. ZOMETA [Suspect]
     Indication: BREAST CANCER METASTATIC
     Dosage: 4 MG MONTHLY
     Route: 042
     Dates: start: 20100427, end: 20121017
  2. CAPECITABINE [Concomitant]
     Indication: BREAST CANCER METASTATIC
     Dosage: 1000 MG, BID
     Route: 048
     Dates: start: 20120702

REACTIONS (7)
  - Osteonecrosis of jaw [Not Recovered/Not Resolved]
  - Exposed bone in jaw [Unknown]
  - Ulcer [Unknown]
  - Gingival erosion [Unknown]
  - Gingival ulceration [Unknown]
  - Gingival pain [Unknown]
  - Pain [Unknown]
